FAERS Safety Report 4816745-5 (Version None)
Quarter: 2005Q4

REPORT INFORMATION
  Report Type: 
  Country: None (occurrence: None)
  Receive Date: 20051101
  Receipt Date: 20050610
  Transmission Date: 20060501
  Serious: No
  Sender: FDA-Public Use
  Company Number: US-GLAXOSMITHKLINE-A0562118A

PATIENT
  Age: 3 Year
  Sex: Female

DRUGS (3)
  1. AMOXIL [Suspect]
     Indication: DRUG USE FOR UNKNOWN INDICATION
     Route: 065
  2. ZITHROMAX [Suspect]
  3. ALBUTEROL SULFATE [Concomitant]
     Route: 055

REACTIONS (3)
  - IRRITABILITY [None]
  - MOOD ALTERED [None]
  - PSYCHOMOTOR HYPERACTIVITY [None]
